FAERS Safety Report 5536755-2 (Version None)
Quarter: 2007Q4

REPORT INFORMATION
  Report Type: 
  Country: None (occurrence: None)
  Receive Date: 20071206
  Receipt Date: 20070525
  Transmission Date: 20080405
  Serious: Yes (Other)
  Sender: FDA-Public Use
  Company Number: US-AMGEN-US226476

PATIENT
  Sex: Male

DRUGS (4)
  1. ENBREL [Suspect]
     Indication: PSORIATIC ARTHROPATHY
     Dates: end: 20070101
  2. ENBREL [Suspect]
     Indication: PSORIASIS
  3. RAPTIVA [Concomitant]
  4. HUMIRA [Concomitant]
     Dates: start: 20070301

REACTIONS (1)
  - NON-HODGKIN'S LYMPHOMA [None]
